FAERS Safety Report 10259606 (Version 1)
Quarter: 2014Q2

REPORT INFORMATION
  Report Type: Spontaneous
  Country: US (occurrence: US)
  Receive Date: 20140625
  Receipt Date: 20140625
  Transmission Date: 20141212
  Serious: No
  Sender: FDA-Public Use
  Company Number: US-009507513-1406DEU008429

PATIENT
  Sex: 0

DRUGS (16)
  1. ZETIA [Suspect]
     Route: 048
  2. XELJANZ [Suspect]
     Indication: RHEUMATOID ARTHRITIS
     Dosage: 5 MG, BID
     Route: 048
     Dates: start: 201404
  3. AMARYL [Concomitant]
  4. AMLODIPINE [Concomitant]
  5. ATENOLOL [Concomitant]
  6. BACTROBAN [Concomitant]
  7. PHISOHEX [Concomitant]
  8. CLARITIN-D [Concomitant]
  9. CYMBALTA [Concomitant]
  10. FLONASE [Concomitant]
  11. GABAPENTIN [Concomitant]
  12. ACETAMINOPHEN (+) HYDROCODONE BITARTRATE [Concomitant]
  13. LORAZEPAM [Concomitant]
  14. HYDROXYCHLOROQUINE SULFATE [Concomitant]
  15. PROBIOTICS (UNSPECIFIED) [Concomitant]
  16. TRAVATAN [Concomitant]

REACTIONS (1)
  - Drug hypersensitivity [Unknown]
